FAERS Safety Report 10171115 (Version 1)
Quarter: 2014Q2

REPORT INFORMATION
  Report Type: Spontaneous
  Country: US (occurrence: None)
  Receive Date: 20140513
  Receipt Date: 20140513
  Transmission Date: 20141212
  Serious: Yes (Hospitalization)
  Sender: FDA-Public Use
  Company Number: None

PATIENT
  Age: 67 Year
  Sex: Male
  Weight: 136.7 kg

DRUGS (1)
  1. WARFARIN [Suspect]
     Route: 048

REACTIONS (7)
  - International normalised ratio increased [None]
  - Mass [None]
  - Hydronephrosis [None]
  - Nausea [None]
  - Hypophagia [None]
  - Retroperitoneal lymphadenopathy [None]
  - Urinary bladder haemorrhage [None]
